FAERS Safety Report 15841504 (Version 1)
Quarter: 2019Q1

REPORT INFORMATION
  Report Type: Spontaneous
  Country: KR (occurrence: KR)
  Receive Date: 20190118
  Receipt Date: 20190118
  Transmission Date: 20190417
  Serious: Yes (Other)
  Sender: FDA-Public Use
  Company Number: KR-ROCHE-2246745

PATIENT
  Age: 57 Year
  Sex: Male

DRUGS (5)
  1. VANCOMYCIN [Concomitant]
     Active Substance: VANCOMYCIN
  2. TEICOPLANIN [Concomitant]
     Active Substance: TEICOPLANIN
  3. LEVETIRACETAM. [Concomitant]
     Active Substance: LEVETIRACETAM
  4. RIVOTRIL [Suspect]
     Active Substance: CLONAZEPAM
     Indication: PRODUCT USED FOR UNKNOWN INDICATION
     Route: 065
  5. ZALTOPROFEN [Concomitant]
     Active Substance: ZALTOPROFEN

REACTIONS (1)
  - Drug reaction with eosinophilia and systemic symptoms [Unknown]
